FAERS Safety Report 16724229 (Version 1)
Quarter: 2019Q3

REPORT INFORMATION
  Report Type: Spontaneous
  Country: FR (occurrence: FR)
  Receive Date: 20190821
  Receipt Date: 20190821
  Transmission Date: 20191005
  Serious: Yes (Life-Threatening, Hospitalization)
  Sender: FDA-Public Use
  Company Number: FR-TEVA-2019-FR-1094204

PATIENT
  Age: 49 Year
  Sex: Female
  Weight: 102 kg

DRUGS (3)
  1. LASILIX 40 MG, COMPRIME SECABLE [Suspect]
     Active Substance: FUROSEMIDE
     Indication: CIRRHOSIS ALCOHOLIC
     Dosage: 40 MILLIGRAM
     Route: 048
     Dates: start: 20190607, end: 20190720
  2. PANTOPRAZOLE [Suspect]
     Active Substance: PANTOPRAZOLE
     Indication: ULCER
     Dosage: 80 MILLIGRAM
     Route: 048
     Dates: start: 20190627, end: 20190720
  3. ALDACTONE [Suspect]
     Active Substance: SPIRONOLACTONE
     Indication: CIRRHOSIS ALCOHOLIC
     Dosage: 75 MILLIGRAM
     Route: 048
     Dates: start: 20190607, end: 20190720

REACTIONS (2)
  - Pyrexia [Recovering/Resolving]
  - Agranulocytosis [Recovered/Resolved]

NARRATIVE: CASE EVENT DATE: 20190719
